FAERS Safety Report 18968869 (Version 3)
Quarter: 2022Q1

REPORT INFORMATION
  Report Type: Report from Study
  Country: GB (occurrence: GB)
  Receive Date: 20210304
  Receipt Date: 20220201
  Transmission Date: 20220424
  Serious: Yes (Other)
  Sender: FDA-Public Use
  Company Number: GB-NOVARTISPH-NVSC2021GB047723

PATIENT
  Sex: Female

DRUGS (1)
  1. OMNITROPE [Suspect]
     Active Substance: SOMATROPIN
     Indication: Growth hormone deficiency
     Dosage: 0.2 MG, QD
     Route: 058
     Dates: start: 20201123

REACTIONS (6)
  - Cushing^s syndrome [Unknown]
  - Nelson^s syndrome [Unknown]
  - Fall [Unknown]
  - Memory impairment [Unknown]
  - Injection site bruising [Unknown]
  - Product dose omission issue [Unknown]
